FAERS Safety Report 17361863 (Version 1)
Quarter: 2020Q1

REPORT INFORMATION
  Report Type: Spontaneous
  Country: US (occurrence: US)
  Receive Date: 20200117
  Receipt Date: 20200117
  Transmission Date: 20200409
  Serious: No
  Sender: FDA-Public Use
  Company Number: None

PATIENT

DRUGS (1)
  1. LEVEMIR [Suspect]
     Active Substance: INSULIN DETEMIR

REACTIONS (5)
  - Hyperhidrosis [None]
  - Haemodialysis [None]
  - Incorrect dose administered [None]
  - Dizziness [None]
  - Blood glucose decreased [None]
